FAERS Safety Report 4364058-0 (Version None)
Quarter: 2004Q2

REPORT INFORMATION
  Report Type: 
  Country: None (occurrence: None)
  Receive Date: 20040519
  Receipt Date: 20040507
  Transmission Date: 20050107
  Serious: Yes (Death)
  Sender: FDA-Public Use
  Company Number: FR-JNJFOC-20040501490

PATIENT
  Age: 51 Year
  Sex: Male

DRUGS (1)
  1. REMICADE [Suspect]
     Indication: COELIAC DISEASE
     Dosage: INTRAVENOUS
     Route: 042
     Dates: start: 20030101

REACTIONS (1)
  - DRUG EFFECT DECREASED [None]
